FAERS Safety Report 25752492 (Version 1)
Quarter: 2025Q3

REPORT INFORMATION
  Report Type: Spontaneous
  Country: US (occurrence: US)
  Receive Date: 20250902
  Receipt Date: 20250902
  Transmission Date: 20251021
  Serious: No
  Sender: CSL BEHRING
  Company Number: US-BEH-2025217370

PATIENT
  Sex: Female

DRUGS (2)
  1. HIZENTRA [Suspect]
     Active Substance: HUMAN IMMUNOGLOBULIN G
     Indication: Hypergammaglobulinaemia
     Dosage: 12 G (60ML), QW
     Route: 058
     Dates: start: 202502
  2. HIZENTRA [Suspect]
     Active Substance: HUMAN IMMUNOGLOBULIN G
     Indication: IgG deficiency
     Dosage: 12 G (60ML), QW
     Route: 058
     Dates: start: 202502

REACTIONS (5)
  - Rash erythematous [Unknown]
  - Injection site erythema [Unknown]
  - Injection site pruritus [Unknown]
  - Weight increased [Unknown]
  - Needle issue [Unknown]
